FAERS Safety Report 13875047 (Version 1)
Quarter: 2017Q3

REPORT INFORMATION
  Report Type: Spontaneous
  Country: US (occurrence: US)
  Receive Date: 20170816
  Receipt Date: 20170816
  Transmission Date: 20171127
  Serious: No
  Sender: FDA-Public Use
  Company Number: US-ROCHE-1015582

PATIENT
  Age: 85 Year
  Sex: Female

DRUGS (7)
  1. LUCENTIS [Suspect]
     Active Substance: RANIBIZUMAB
     Indication: PRODUCT USED FOR UNKNOWN INDICATION
     Dosage: ROUTE - OD, FREQUENCY 6-8 WEEKS
     Route: 050
     Dates: start: 20110805
  2. PRAVASTATIN. [Concomitant]
     Active Substance: PRAVASTATIN
     Route: 065
  3. ISTALOL [Concomitant]
     Active Substance: TIMOLOL MALEATE
     Dosage: DOSE- 0.590
     Route: 065
  4. METOPROLOL. [Concomitant]
     Active Substance: METOPROLOL
     Route: 065
  5. ASA [Concomitant]
     Active Substance: ASPIRIN
     Route: 065
  6. LISINOPRIL. [Concomitant]
     Active Substance: LISINOPRIL
     Route: 065
  7. XALATAN [Concomitant]
     Active Substance: LATANOPROST
     Dosage: DOSE- 0.0590 QHS
     Route: 065

REACTIONS (2)
  - Vitreous floaters [Recovered/Resolved]
  - Visual impairment [Recovered/Resolved]

NARRATIVE: CASE EVENT DATE: 20110805
